FAERS Safety Report 12288861 (Version 2)
Quarter: 2016Q2

REPORT INFORMATION
  Report Type: Spontaneous
  Country: US (occurrence: US)
  Receive Date: 20160421
  Receipt Date: 20160608
  Transmission Date: 20160815
  Serious: No
  Sender: FDA-Public Use
  Company Number: US-JNJFOC-20160321421

PATIENT
  Sex: Male

DRUGS (1)
  1. KETOCONAZOLE. [Suspect]
     Active Substance: KETOCONAZOLE
     Indication: DERMATITIS
     Dosage: EVERY 2 TO 3 DAYS
     Route: 061
     Dates: start: 2001

REACTIONS (2)
  - Sneezing [Not Recovered/Not Resolved]
  - Acne [Not Recovered/Not Resolved]
